FAERS Safety Report 15938226 (Version 1)
Quarter: 2019Q1

REPORT INFORMATION
  Report Type: Spontaneous
  Country: US (occurrence: US)
  Receive Date: 20190208
  Receipt Date: 20190208
  Transmission Date: 20190417
  Serious: Yes (Other)
  Sender: FDA-Public Use
  Company Number: None

PATIENT
  Age: 67 Year
  Sex: Male
  Weight: 111.1 kg

DRUGS (15)
  1. ASPIRIN. [Concomitant]
     Active Substance: ASPIRIN
  2. FLUOROURACIL. [Concomitant]
     Active Substance: FLUOROURACIL
  3. PALONOSETRON HCL [Concomitant]
     Active Substance: PALONOSETRON HYDROCHLORIDE
  4. CAPECITABINE. [Suspect]
     Active Substance: CAPECITABINE
     Indication: NEOPLASM OF APPENDIX
     Dosage: ?          OTHER FREQUENCY:BID X14 DAY;?
     Route: 048
     Dates: start: 20181005
  5. PANTOPRAZOLE SODIUM. [Concomitant]
     Active Substance: PANTOPRAZOLE SODIUM
  6. ELEQUIS [Concomitant]
  7. OXALIPLATIN. [Concomitant]
     Active Substance: OXALIPLATIN
  8. FAMOTIDINE. [Concomitant]
     Active Substance: FAMOTIDINE
  9. LEUCOVORIN CALCIUM. [Concomitant]
     Active Substance: LEUCOVORIN CALCIUM
  10. DEXAMETHASONE. [Concomitant]
     Active Substance: DEXAMETHASONE
  11. EMEND [Concomitant]
     Active Substance: APREPITANT
  12. PROBIOTIC ACIDOPHILUS BIOBEADS [Concomitant]
  13. DIPHENHYDRAMINE. [Concomitant]
     Active Substance: DIPHENHYDRAMINE
  14. GLUCOSAMINE-CHONDROIT-COLLAGEN [Concomitant]
  15. VENOFER [Concomitant]
     Active Substance: IRON SUCROSE

REACTIONS (1)
  - Blister [None]

NARRATIVE: CASE EVENT DATE: 20190208
